FAERS Safety Report 7676618-X (Version None)
Quarter: 2011Q3

REPORT INFORMATION
  Report Type: 
  Country: None (occurrence: None)
  Receive Date: 20110811
  Receipt Date: 20110803
  Transmission Date: 20111222
  Serious: Yes (Other)
  Sender: FDA-Public Use
  Company Number: US-ASTELLAS-2011US003025

PATIENT
  Sex: Male

DRUGS (1)
  1. ERLOTINIB HYDROCHLORIDE [Suspect]
     Indication: LUNG NEOPLASM MALIGNANT
     Dosage: 150 MG, UID/QD
     Route: 048
     Dates: start: 20110606

REACTIONS (7)
  - FUNGAL INFECTION [None]
  - HERPES SIMPLEX [None]
  - DERMATITIS ACNEIFORM [None]
  - DIARRHOEA [None]
  - PNEUMONIA [None]
  - ANAEMIA [None]
  - EPISTAXIS [None]
